FAERS Safety Report 5652679-4 (Version None)
Quarter: 2008Q1

REPORT INFORMATION
  Report Type: 
  Country: None (occurrence: None)
  Receive Date: 20080305
  Receipt Date: 20080305
  Transmission Date: 20080703
  Serious: Yes (Hospitalization)
  Sender: FDA-Public Use
  Company Number: None

PATIENT
  Age: 64 Year
  Sex: Male
  Weight: 104 kg

DRUGS (1)
  1. NAPROXEN [Suspect]
     Indication: BACK PAIN
     Dosage: 500 MG BID PO
     Route: 048
     Dates: start: 20070712, end: 20071206

REACTIONS (5)
  - BACK PAIN [None]
  - DUODENAL ULCER [None]
  - GASTRIC ULCER [None]
  - INCORRECT DOSE ADMINISTERED [None]
  - PAIN IN EXTREMITY [None]
